FAERS Safety Report 11132968 (Version 1)
Quarter: 2015Q2

REPORT INFORMATION
  Report Type: Spontaneous
  Country: EG (occurrence: EG)
  Receive Date: 20150522
  Receipt Date: 20150522
  Transmission Date: 20150821
  Serious: Yes (Other)
  Sender: FDA-Public Use
  Company Number: EG-NOVOPROD-449531

PATIENT
  Age: 50 Year
  Sex: Female
  Weight: 70 kg

DRUGS (9)
  1. MIXTARD 30 HM PENFILL [Suspect]
     Active Substance: INSULIN HUMAN
     Dosage: 50 U, QD (30 UNITS AT DAY AND 20 UNITS AT NIGHT )
     Route: 058
     Dates: start: 2014
  2. DICLAC                             /00372302/ [Concomitant]
     Active Substance: DICLOFENAC POTASSIUM
     Dosage: STARTED 2 YEARS AGO AND STOPPED FROM 3 MONTHS
     Route: 065
  3. GLUCAGON. [Concomitant]
     Active Substance: GLUCAGON
     Indication: DIABETES MELLITUS
     Dosage: 1 TAB, QD (FOR ONE MONTH)
     Route: 048
     Dates: start: 201503
  4. MIXTARD 30 HM PENFILL [Suspect]
     Active Substance: INSULIN HUMAN
     Indication: DIABETES MELLITUS
     Dosage: 30 U, QD
     Route: 058
     Dates: start: 2012
  5. CONCOR 5 PLUS [Concomitant]
     Indication: HYPERTENSION
     Dosage: SINGLE, 6-7 YEARS AGO TILL NOW
     Route: 048
  6. COLOVERIN [Concomitant]
     Dosage: SINGLE
     Route: 048
     Dates: start: 2012
  7. OMEPRAL                            /00661201/ [Concomitant]
     Active Substance: OMEPRAZOLE
     Indication: ABDOMINAL DISCOMFORT
     Dosage: SINGLE
     Route: 048
     Dates: start: 2012
  8. GALVUSMET [Concomitant]
     Indication: DIABETES MELLITUS
     Dosage: UNK
     Route: 065
  9. MIXTARD 30 HM PENFILL [Suspect]
     Active Substance: INSULIN HUMAN
     Dosage: 70 U, QD (50 UNITS PER DAY AND 20 UNITS AT NIGHT )
     Route: 058
     Dates: start: 2015

REACTIONS (6)
  - Blood glucose fluctuation [Not Recovered/Not Resolved]
  - Loss of consciousness [Unknown]
  - Hypoaesthesia [Unknown]
  - Hypoglycaemia [Unknown]
  - Hyperglycaemia [Unknown]
  - Oedema peripheral [Unknown]

NARRATIVE: CASE EVENT DATE: 2014
